FAERS Safety Report 9515441 (Version 2)
Quarter: 2013Q3

REPORT INFORMATION
  Report Type: Spontaneous
  Country: JP (occurrence: JP)
  Receive Date: 20130911
  Receipt Date: 20130911
  Transmission Date: 20140515
  Serious: Yes (Other)
  Sender: FDA-Public Use
  Company Number: PHHY2013JP081645

PATIENT
  Age: 71 Year
  Sex: 0

DRUGS (8)
  1. VOLTAREN [Suspect]
     Indication: NASOPHARYNGITIS
     Dosage: 1 DF, TID
     Route: 048
     Dates: start: 20130630, end: 20130703
  2. BIOFERMIN [Concomitant]
     Dosage: 1 DF, UNK
     Route: 048
  3. BONALON [Concomitant]
     Dosage: 35 MG, UNK
     Route: 048
  4. OLMETEC [Concomitant]
     Dosage: UNK UKN, UNK
     Route: 048
  5. BESASTAR [Concomitant]
     Dosage: UNK UKN, UNK
     Route: 048
  6. GASMET [Concomitant]
     Dosage: UNK UKN, UNK
     Route: 048
  7. FLAVOSTEN [Concomitant]
     Dosage: UNK UKN, UNK
     Route: 048
  8. DIQUAS [Concomitant]
     Dosage: UNK UKN, UNK
     Route: 048

REACTIONS (2)
  - Parosmia [Not Recovered/Not Resolved]
  - Dysgeusia [Not Recovered/Not Resolved]
